FAERS Safety Report 19012000 (Version 1)
Quarter: 2021Q1

REPORT INFORMATION
  Report Type: Spontaneous
  Country: US (occurrence: US)
  Receive Date: 20210315
  Receipt Date: 20210315
  Transmission Date: 20210420
  Serious: No
  Sender: FDA-Public Use
  Company Number: US-PERRIGO-21US001360

PATIENT
  Age: 80 Year
  Sex: Female
  Weight: 56.24 kg

DRUGS (2)
  1. LOPERAMIDE?SIMETHICONE [Suspect]
     Active Substance: DIMETHICONE\LOPERAMIDE HYDROCHLORIDE
     Dosage: 1 TABLET, PRN
     Route: 048
     Dates: start: 20210113
  2. LOPERAMIDE?SIMETHICONE [Suspect]
     Active Substance: DIMETHICONE\LOPERAMIDE HYDROCHLORIDE
     Indication: DIARRHOEA
     Dosage: 2 TABLETS, PRN
     Route: 048
     Dates: start: 20201226, end: 20210112

REACTIONS (2)
  - Intentional product use issue [Not Recovered/Not Resolved]
  - Wrong technique in product usage process [Not Recovered/Not Resolved]

NARRATIVE: CASE EVENT DATE: 20201226
